FAERS Safety Report 12146852 (Version 1)
Quarter: 2016Q1

REPORT INFORMATION
  Report Type: Report from Study
  Country: US (occurrence: US)
  Receive Date: 20160304
  Receipt Date: 20160304
  Transmission Date: 20160526
  Serious: Yes (Hospitalization)
  Sender: FDA-Public Use
  Company Number: US-BIOGEN-2016BI00195446

PATIENT
  Sex: Female

DRUGS (1)
  1. TECFIDERA [Suspect]
     Active Substance: DIMETHYL FUMARATE
     Indication: MULTIPLE SCLEROSIS
     Route: 065
     Dates: start: 20141107, end: 20160101

REACTIONS (5)
  - Gastrointestinal disorder [Recovered/Resolved]
  - Asthenia [Recovered/Resolved]
  - Infection [Recovered/Resolved]
  - General symptom [Recovered/Resolved]
  - Adverse drug reaction [Recovered/Resolved]
